FAERS Safety Report 16230372 (Version 2)
Quarter: 2019Q2

REPORT INFORMATION
  Report Type: Report from Study
  Country: US (occurrence: US)
  Receive Date: 20190423
  Receipt Date: 20190425
  Transmission Date: 20190711
  Serious: Yes (Hospitalization, Other)
  Sender: FDA-Public Use
  Company Number: US-GILEAD-2019-0403867

PATIENT
  Age: 17 Year
  Sex: Male

DRUGS (9)
  1. AZTREONAM LYSINE [Suspect]
     Active Substance: AZTREONAM LYSINE
     Indication: CYSTIC FIBROSIS
     Dosage: 75 MG, TID FOR 2 WEEKS ON AND THEN 2 WEEKS OFF
     Route: 055
     Dates: start: 20190112
  2. MELATONIN [Concomitant]
     Active Substance: MELATONIN
  3. TOBRAMYCIN. [Concomitant]
     Active Substance: TOBRAMYCIN
  4. BREO ELLIPTA [Concomitant]
     Active Substance: FLUTICASONE FUROATE\VILANTEROL TRIFENATATE
  5. PULMOZYME [Concomitant]
     Active Substance: DORNASE ALFA
  6. BOOST [Concomitant]
     Active Substance: DIETARY SUPPLEMENT
  7. SPIRIVA [Concomitant]
     Active Substance: TIOTROPIUM BROMIDE MONOHYDRATE
  8. SYMDEKO [Concomitant]
     Active Substance: IVACAFTOR\TEZACAFTOR
  9. MVW COMPLETE FORMULATION D3000 [Concomitant]

REACTIONS (3)
  - Off label use [Not Recovered/Not Resolved]
  - Cystic fibrosis respiratory infection suppression [Unknown]
  - Cystic fibrosis [Unknown]

NARRATIVE: CASE EVENT DATE: 20190112
